FAERS Safety Report 6050415-3 (Version None)
Quarter: 2009Q1

REPORT INFORMATION
  Report Type: 
  Country: None (occurrence: None)
  Receive Date: 20090121
  Receipt Date: 20080401
  Transmission Date: 20090719
  Serious: Yes (Death)
  Sender: FDA-Public Use
  Company Number: MC200800147

PATIENT
  Age: 67 Year
  Sex: Male
  Weight: 74.4 kg

DRUGS (6)
  1. ANGIOMAX [Suspect]
     Indication: PERCUTANEOUS CORONARY INTERVENTION
     Dosage: 0.75 MG/KG (TOTAL 11 ML), BOLUS, INTRAVENOUS; 1.75 MG/KG, HR, INTRAVENOUS
     Route: 042
     Dates: start: 20080320, end: 20080320
  2. ANGIOMAX [Suspect]
     Indication: PERCUTANEOUS CORONARY INTERVENTION
     Dosage: 0.75 MG/KG (TOTAL 11 ML), BOLUS, INTRAVENOUS; 1.75 MG/KG, HR, INTRAVENOUS
     Route: 042
     Dates: start: 20080320
  3. ZOCOR [Concomitant]
  4. CELEBREX [Concomitant]
  5. ASPIRIN/00002701/(ACETYLSALICYLCIC ACID) [Concomitant]
  6. LORATADINE [Concomitant]

REACTIONS (2)
  - CORONARY ARTERY THROMBOSIS [None]
  - VENTRICULAR FIBRILLATION [None]
